FAERS Safety Report 23468593 (Version 1)
Quarter: 2024Q1

REPORT INFORMATION
  Report Type: Spontaneous
  Country: US (occurrence: None)
  Receive Date: 20240201
  Receipt Date: 20240201
  Transmission Date: 20240410
  Serious: Yes (Disabling)
  Sender: FDA-Public Use
  Company Number: None

PATIENT
  Age: 75 Year
  Sex: Male
  Weight: 87.75 kg

DRUGS (3)
  1. ELIQUIS [Suspect]
     Active Substance: APIXABAN
     Indication: Hip arthroplasty
     Dosage: FREQUENCY : TWICE A DAY;?
     Route: 048
     Dates: start: 20231114, end: 20231128
  2. ACETAMINOPHEN\HYDROCODONE [Suspect]
     Active Substance: ACETAMINOPHEN\HYDROCODONE
     Indication: Hip arthroplasty
     Dosage: FREQUENCY : EVERY 4 HOURS;?
     Route: 048
     Dates: start: 20231114, end: 20231117
  3. MAGNESIUM [Concomitant]
     Active Substance: MAGNESIUM

REACTIONS (4)
  - Rash vesicular [None]
  - Rash pruritic [None]
  - Purpura [None]
  - Therapy cessation [None]

NARRATIVE: CASE EVENT DATE: 20231115
